FAERS Safety Report 5602886-1 (Version None)
Quarter: 2008Q1

REPORT INFORMATION
  Report Type: 
  Country: None (occurrence: None)
  Receive Date: 20080125
  Receipt Date: 20080123
  Transmission Date: 20080703
  Serious: Yes (Death)
  Sender: FDA-Public Use
  Company Number: US-BOEHRINGER INGELHEIM PHARMACEUTICALS, INC.-2008-BP-01200BP

PATIENT
  Age: 81 Year
  Sex: Male

DRUGS (2)
  1. MOBIC [Suspect]
     Indication: PAIN
     Dates: start: 20070330, end: 20070406
  2. MOBIC [Suspect]
     Indication: OSTEOARTHRITIS
     Dates: start: 20070406

REACTIONS (1)
  - DEATH [None]
